FAERS Safety Report 10223704 (Version 1)
Quarter: 2014Q2

REPORT INFORMATION
  Report Type: Spontaneous
  Country: DE (occurrence: DE)
  Receive Date: 20140609
  Receipt Date: 20140609
  Transmission Date: 20141212
  Serious: Yes (Other)
  Sender: FDA-Public Use
  Company Number: DE-JNJFOC-20140518268

PATIENT
  Sex: Female

DRUGS (2)
  1. REGAINE MAENNER 5% [Suspect]
     Route: 061
  2. REGAINE MAENNER 5% [Suspect]
     Indication: ALOPECIA
     Route: 061

REACTIONS (2)
  - Breast cancer [Not Recovered/Not Resolved]
  - Contraindication to medical treatment [Recovered/Resolved]
